FAERS Safety Report 20879096 (Version 1)
Quarter: 2022Q2

REPORT INFORMATION
  Report Type: Spontaneous
  Country: GB (occurrence: GB)
  Receive Date: 20220526
  Receipt Date: 20220526
  Transmission Date: 20220721
  Serious: Yes (Disabling, Other)
  Sender: FDA-Public Use
  Company Number: GB-VERTEX PHARMACEUTICALS-2022-007749

PATIENT
  Age: 26 Year
  Sex: Female

DRUGS (1)
  1. ELEXACAFTOR\IVACAFTOR\TEZACAFTOR [Suspect]
     Active Substance: ELEXACAFTOR\IVACAFTOR\TEZACAFTOR
     Indication: Cystic fibrosis
     Dosage: UNK
     Route: 048

REACTIONS (6)
  - Confusional state [Recovered/Resolved]
  - Depression [Recovering/Resolving]
  - Tremor [Recovered/Resolved]
  - Anxiety [Recovering/Resolving]
  - Suicide threat [Recovered/Resolved]
  - Mental impairment [Recovering/Resolving]
